FAERS Safety Report 6234342-4 (Version None)
Quarter: 2009Q2

REPORT INFORMATION
  Report Type: 
  Country: None (occurrence: None)
  Receive Date: 20090616
  Receipt Date: 20090616
  Transmission Date: 20091009
  Serious: Yes (Other)
  Sender: FDA-Public Use
  Company Number: None

PATIENT
  Sex: Male
  Weight: 87.0906 kg

DRUGS (1)
  1. ALLER-TEC 10MG KIRKLAND [Suspect]
     Dosage: TWICE
     Dates: start: 20090612, end: 20090613

REACTIONS (8)
  - ABDOMINAL PAIN LOWER [None]
  - COGNITIVE DISORDER [None]
  - DISORIENTATION [None]
  - DRY MOUTH [None]
  - FATIGUE [None]
  - NIGHTMARE [None]
  - PARANOIA [None]
  - SOMNOLENCE [None]
